FAERS Safety Report 14403056 (Version 1)
Quarter: 2018Q1

REPORT INFORMATION
  Report Type: Spontaneous
  Country: US (occurrence: US)
  Receive Date: 20180117
  Receipt Date: 20180117
  Transmission Date: 20180509
  Serious: Yes (Disabling, Other)
  Sender: FDA-Public Use
  Company Number: None

PATIENT
  Age: 75 Year
  Sex: Female
  Weight: 111.13 kg

DRUGS (11)
  1. CAPECITABINE 500MG TABLET [Suspect]
     Active Substance: CAPECITABINE
     Indication: COLON CANCER STAGE II
     Dosage: 3 PILLS TWICE DAILY BY MOUTH
     Route: 048
     Dates: start: 20171030, end: 20171106
  2. TYLENOL [Concomitant]
     Active Substance: ACETAMINOPHEN
  3. LIPOSOMAL GLUTATHIONE [Concomitant]
  4. WHEELCHAIR [Concomitant]
     Active Substance: DEVICE
  5. VITAMIN D3 [Concomitant]
     Active Substance: CHOLECALCIFEROL
  6. BEDSIDE COMMODE [Concomitant]
  7. IRON [Concomitant]
     Active Substance: IRON
  8. LASIXS [Concomitant]
  9. VITAMIN B12 [Concomitant]
     Active Substance: CYANOCOBALAMIN
  10. MILK OF MAG [Concomitant]
  11. BED RAILS [Concomitant]

REACTIONS (3)
  - Diarrhoea [None]
  - Peripheral swelling [None]
  - Joint swelling [None]

NARRATIVE: CASE EVENT DATE: 20171106
